FAERS Safety Report 15273180 (Version 2)
Quarter: 2018Q3

REPORT INFORMATION
  Report Type: Report from Study
  Country: FR (occurrence: FR)
  Receive Date: 20180813
  Receipt Date: 20180820
  Transmission Date: 20181010
  Serious: Yes (Life-Threatening, Other)
  Sender: FDA-Public Use
  Company Number: FR-CHIESI USA INC.-FR-2018CHI000199

PATIENT
  Age: 2 Day
  Sex: Female
  Weight: .96 kg

DRUGS (4)
  1. CAFFEINE. [Concomitant]
     Active Substance: CAFFEINE
     Indication: PROPHYLAXIS
  2. CUROSURF [Suspect]
     Active Substance: PORACTANT ALFA
     Dosage: 120 MG, SINGLE
     Route: 007
     Dates: start: 20180726, end: 20180726
  3. CUROSURF [Suspect]
     Active Substance: PORACTANT ALFA
     Indication: NEONATAL RESPIRATORY DISTRESS SYNDROME
     Dosage: UNK
     Route: 007
     Dates: start: 201807
  4. CAFFEINE. [Concomitant]
     Active Substance: CAFFEINE
     Indication: INFANTILE APNOEA
     Dosage: 5 MG/KG, QD
     Dates: start: 20180725

REACTIONS (3)
  - Cardio-respiratory arrest neonatal [Recovered/Resolved]
  - Pneumothorax [Recovered/Resolved with Sequelae]
  - Pulmonary arterial hypertension [Recovered/Resolved with Sequelae]

NARRATIVE: CASE EVENT DATE: 20180727
